FAERS Safety Report 20432528 (Version 1)
Quarter: 2022Q1

REPORT INFORMATION
  Report Type: Spontaneous
  Country: CN (occurrence: CN)
  Receive Date: 20220204
  Receipt Date: 20220204
  Transmission Date: 20220423
  Serious: Yes (Hospitalization, Other)
  Sender: FDA-Public Use
  Company Number: CN-009507513-2202CHN000785

PATIENT
  Age: 74 Year
  Sex: Male
  Weight: 77.9 kg

DRUGS (8)
  1. KEYTRUDA [Suspect]
     Active Substance: PEMBROLIZUMAB
     Indication: Lung neoplasm malignant
     Dosage: 200MG, 1 TIME IN ONE DAY
     Route: 041
     Dates: start: 20211030, end: 20211030
  2. KEYTRUDA [Suspect]
     Active Substance: PEMBROLIZUMAB
     Dosage: 200MG, 1 TIME IN ONE DAY
     Route: 041
     Dates: start: 20211121, end: 20211121
  3. CARBOPLATIN [Concomitant]
     Active Substance: CARBOPLATIN
     Indication: Lung neoplasm malignant
     Dosage: 0.5G, ONCE
     Route: 041
     Dates: start: 20211030, end: 20211030
  4. CARBOPLATIN [Concomitant]
     Active Substance: CARBOPLATIN
     Dosage: 0.5G, 1 TIME IN ONE DAY
     Route: 041
     Dates: start: 20211121, end: 20211121
  5. CARBOPLATIN [Concomitant]
     Active Substance: CARBOPLATIN
     Dosage: 0.5G, ONCE
     Route: 041
     Dates: start: 20211216, end: 20211216
  6. PEMETREXED DISODIUM [Concomitant]
     Active Substance: PEMETREXED DISODIUM
     Indication: Lung neoplasm malignant
     Dosage: 0.9G, 1 TIME IN ONE DAY
     Route: 041
     Dates: start: 20211030, end: 20211030
  7. PEMETREXED DISODIUM [Concomitant]
     Active Substance: PEMETREXED DISODIUM
     Dosage: 0.9G, 1 TIME IN ONE DAY
     Route: 041
     Dates: start: 20211121, end: 20211121
  8. PEMETREXED DISODIUM [Concomitant]
     Active Substance: PEMETREXED DISODIUM
     Dosage: 0.8 G, ONCE
     Dates: start: 20211216, end: 20211216

REACTIONS (5)
  - Productive cough [Recovering/Resolving]
  - Lung consolidation [Recovering/Resolving]
  - Immune-mediated lung disease [Recovering/Resolving]
  - Cough [Recovering/Resolving]
  - Inappropriate schedule of product administration [Unknown]

NARRATIVE: CASE EVENT DATE: 20211121
